FAERS Safety Report 4788280-4 (Version None)
Quarter: 2005Q4

REPORT INFORMATION
  Report Type: 
  Country: None (occurrence: None)
  Receive Date: 20051003
  Receipt Date: 20050927
  Transmission Date: 20060501
  Serious: Yes (Hospitalization)
  Sender: FDA-Public Use
  Company Number: THQ2005A00849

PATIENT
  Age: 32 Year
  Sex: Female

DRUGS (3)
  1. LANSOPRAZOLE [Suspect]
     Indication: ABDOMINAL PAIN UPPER
     Dosage: 30 MG (30 MG, 1 IN 1 D); PER ORAL
     Route: 048
     Dates: start: 20030101, end: 20040501
  2. LANSOPRAZOLE [Suspect]
     Indication: DYSPEPSIA
     Dosage: 30 MG (30 MG, 1 IN 1 D); PER ORAL
     Route: 048
     Dates: start: 20030101, end: 20040501
  3. OMEPRAZOLE [Suspect]
     Dosage: 20 MG (20 MG, 1 IN 1 D); PER ORAL
     Route: 048
     Dates: end: 20030101

REACTIONS (4)
  - BLOOD CHROMOGRANIN A INCREASED [None]
  - HYPERGASTRINAEMIA [None]
  - LABILE HYPERTENSION [None]
  - NORMETANEPHRINE URINE INCREASED [None]
